FAERS Safety Report 19082066 (Version 4)
Quarter: 2021Q2

REPORT INFORMATION
  Report Type: Report from Study
  Country: US (occurrence: US)
  Receive Date: 20210401
  Receipt Date: 20210619
  Transmission Date: 20210717
  Serious: Yes (Hospitalization, Other)
  Sender: FDA-Public Use
  Company Number: NVSC2021US072842

PATIENT
  Age: 37 Year
  Sex: Female

DRUGS (1)
  1. GILENYA [Suspect]
     Active Substance: FINGOLIMOD HYDROCHLORIDE
     Indication: MULTIPLE SCLEROSIS
     Dosage: 0.5 MG, QD
     Route: 048
     Dates: start: 20210326

REACTIONS (7)
  - Balance disorder [Unknown]
  - Multiple sclerosis [Unknown]
  - Fatigue [Recovered/Resolved]
  - Gait disturbance [Unknown]
  - Abscess [Unknown]
  - Mobility decreased [Unknown]
  - Asthenia [Unknown]

NARRATIVE: CASE EVENT DATE: 20210326
